FAERS Safety Report 23763572 (Version 2)
Quarter: 2024Q2

REPORT INFORMATION
  Report Type: Spontaneous
  Country: US (occurrence: US)
  Receive Date: 20240419
  Receipt Date: 20240423
  Transmission Date: 20240715
  Serious: No
  Sender: FDA-Public Use
  Company Number: US-PFIZER INC-202400089464

PATIENT
  Age: 30 Year
  Sex: Male

DRUGS (2)
  1. OXBRYTA [Suspect]
     Active Substance: VOXELOTOR
     Dosage: 300MG, 3 TABLETS ONCE DAILY, ORALLY
     Route: 048
     Dates: start: 2021
  2. OXBRYTA [Suspect]
     Active Substance: VOXELOTOR
     Dosage: 300MG, 3 TABLETS ONCE DAILY, ORALLY
     Route: 048
     Dates: start: 2020

REACTIONS (1)
  - Off label use [Unknown]
